FAERS Safety Report 8264146-2 (Version None)
Quarter: 2012Q2

REPORT INFORMATION
  Report Type: 
  Country: None (occurrence: None)
  Receive Date: 20120406
  Receipt Date: 20120402
  Transmission Date: 20120825
  Serious: Yes (Hospitalization)
  Sender: FDA-Public Use
  Company Number: FR-AMGEN-FRASP2012020604

PATIENT
  Age: 65 Year
  Sex: Male

DRUGS (11)
  1. IRBESARTAN [Concomitant]
  2. PREDNISONE TAB [Concomitant]
  3. SIMVASTATIN [Concomitant]
  4. PRIMPERAN TAB [Concomitant]
  5. CORDARONE [Concomitant]
  6. TRAMADOL HCL [Suspect]
     Indication: PAIN
     Dosage: 150 MG, UNK
     Route: 048
     Dates: start: 20111228, end: 20120105
  7. INNOHEP [Concomitant]
  8. NEUPOGEN [Suspect]
     Indication: AGRANULOCYTOSIS
     Dosage: 0.3 MG/ML, UNK
     Route: 058
     Dates: start: 20111227, end: 20120104
  9. ATARAX [Concomitant]
  10. TRAMADOL HCL [Suspect]
     Dosage: 50 MG, UNK
     Route: 048
     Dates: start: 20111227, end: 20111231
  11. PANTOPRAZOLE [Concomitant]

REACTIONS (2)
  - CYTOLYTIC HEPATITIS [None]
  - CHOLESTASIS [None]
